FAERS Safety Report 6886059-0 (Version None)
Quarter: 2010Q3

REPORT INFORMATION
  Report Type: 
  Country: None (occurrence: None)
  Receive Date: 20100729
  Receipt Date: 20090319
  Transmission Date: 20110219
  Serious: Yes (Other)
  Sender: FDA-Public Use
  Company Number: US-PFIZER INC-2008094888

PATIENT
  Age: 40 Year
  Sex: Female
  Weight: 66 kg

DRUGS (6)
  1. CELEBREX [Suspect]
     Indication: FIBROMYALGIA
     Dates: start: 20080701, end: 20081106
  2. LYRICA [Concomitant]
     Dosage: 50MG IN AM, 75MG IN PM
  3. LEVOTHROID [Concomitant]
     Indication: HYPOTHYROIDISM
  4. EFFEXOR [Concomitant]
  5. METHADONE HCL [Concomitant]
  6. ESTRADIOL [Concomitant]

REACTIONS (1)
  - PALPITATIONS [None]
